FAERS Safety Report 20386943 (Version 1)
Quarter: 2022Q1

REPORT INFORMATION
  Report Type: Spontaneous
  Country: US (occurrence: US)
  Receive Date: 20220127
  Receipt Date: 20220127
  Transmission Date: 20220423
  Serious: No
  Sender: FDA-Public Use
  Company Number: US-ALLERGAN-2115045US

PATIENT
  Age: 7 Decade
  Sex: Female

DRUGS (1)
  1. BOTOX [Suspect]
     Active Substance: ONABOTULINUMTOXINA
     Indication: Product used for unknown indication
     Dosage: 100 UNITS, SINGLE

REACTIONS (6)
  - Hypotension [Unknown]
  - Presyncope [Unknown]
  - Disturbance in attention [Unknown]
  - Pallor [Unknown]
  - Hyperhidrosis [Unknown]
  - Asthenia [Unknown]
